FAERS Safety Report 4643944-8 (Version None)
Quarter: 2005Q2

REPORT INFORMATION
  Report Type: 
  Country: None (occurrence: None)
  Receive Date: 20050425
  Receipt Date: 20000414
  Transmission Date: 20051028
  Serious: Yes (Death)
  Sender: FDA-Public Use
  Company Number: LIT/00/00227/SIM

PATIENT
  Age: 5 Month
  Sex: Female

DRUGS (2)
  1. CYCLOSPORINE [Suspect]
     Indication: GRAFT VERSUS HOST DISEASE
     Dosage: UNSPECIFIED
     Route: 065
  2. METHYLPREDNISOLONE [Concomitant]
     Indication: GRAFT VERSUS HOST DISEASE
     Dosage: 1 MG/KG/D TAPERED OVER 1 MONTH

REACTIONS (22)
  - ADENOVIRUS INFECTION [None]
  - APNOEIC ATTACK [None]
  - CEREBRAL ATROPHY [None]
  - CEREBRAL DISORDER [None]
  - CLONUS [None]
  - CSF CELL COUNT INCREASED [None]
  - CSF PROTEIN INCREASED [None]
  - ENCEPHALITIS [None]
  - GRAFT VERSUS HOST DISEASE [None]
  - HEAD LAG ABNORMAL [None]
  - IRRITABILITY [None]
  - LOSS OF CONSCIOUSNESS [None]
  - NERVOUS SYSTEM DISORDER [None]
  - OPISTHOTONUS [None]
  - PERICARDIAL EFFUSION [None]
  - PERICARDITIS [None]
  - PNEUMONITIS [None]
  - PYREXIA [None]
  - REFLEXES ABNORMAL [None]
  - SOMNOLENCE [None]
  - T-LYMPHOCYTE COUNT INCREASED [None]
  - UNRESPONSIVE TO PAIN STIMULI [None]
